FAERS Safety Report 11965583 (Version 2)
Quarter: 2016Q3

REPORT INFORMATION
  Report Type: Spontaneous
  Country: GB (occurrence: GB)
  Receive Date: 20160127
  Receipt Date: 20160916
  Transmission Date: 20161109
  Serious: Yes (Other)
  Sender: FDA-Public Use
  Company Number: GB-TEVA-626791ACC

PATIENT
  Age: 82 Year
  Sex: Female
  Weight: 60 kg

DRUGS (10)
  1. TRIMETHOPRIM. [Suspect]
     Active Substance: TRIMETHOPRIM
     Dates: start: 20151224
  2. CITALOPRAM [Concomitant]
     Active Substance: CITALOPRAM HYDROBROMIDE
     Dosage: .5 ML DAILY;
     Dates: start: 20150514
  3. GALANTAMINE. [Concomitant]
     Active Substance: GALANTAMINE
     Dosage: 6 ML DAILY;
     Dates: start: 20150514
  4. MEMANTINE. [Concomitant]
     Active Substance: MEMANTINE
     Dosage: 2 ML DAILY;
     Dates: start: 20150428
  5. AMOXICILLIN. [Concomitant]
     Active Substance: AMOXICILLIN
     Dosage: 30 ML DAILY; 2X5ML SPOON.
     Dates: start: 20151124, end: 20151130
  6. DESUNIN [Concomitant]
     Active Substance: CHOLECALCIFEROL
     Dosage: 1 DOSAGE FORMS DAILY;
     Dates: start: 20150804
  7. TINZAPARIN [Concomitant]
     Active Substance: TINZAPARIN
     Dosage: .55 ML DAILY; INJECT 0.55MLS (11000 UNITS) ONCE DAILY.
     Dates: start: 20150619
  8. CALCIUM CARBONATE. [Concomitant]
     Active Substance: CALCIUM CARBONATE
     Dosage: 3 DOSAGE FORMS DAILY;
     Dates: start: 20150804
  9. ASPIRIN. [Concomitant]
     Active Substance: ASPIRIN
     Dosage: 1 DOSAGE FORMS DAILY;
     Dates: start: 20150428
  10. REGURIN [Concomitant]
     Active Substance: TROSPIUM CHLORIDE
     Dosage: 1 DOSAGE FORMS DAILY;
     Dates: start: 20150428

REACTIONS (5)
  - Rash [Recovered/Resolved]
  - Speech disorder [Unknown]
  - Hypersensitivity [Unknown]
  - Malaise [Unknown]
  - Syncope [Unknown]

NARRATIVE: CASE EVENT DATE: 20160111
